FAERS Safety Report 8381823-3 (Version None)
Quarter: 2012Q2

REPORT INFORMATION
  Report Type: 
  Country: None (occurrence: None)
  Receive Date: 20120522
  Receipt Date: 20120522
  Transmission Date: 20120825
  Serious: Yes (Other)
  Sender: FDA-Public Use
  Company Number: None

PATIENT
  Age: 11 Month
  Sex: Female
  Weight: 8.1647 kg

DRUGS (1)
  1. GRISEOFULVIN [Suspect]
     Indication: TINEA INFECTION
     Dosage: 4ML BY MOUTH 2X A DAY FOR 4 WK PO
     Route: 048
     Dates: start: 20120508, end: 20120517

REACTIONS (7)
  - CANDIDIASIS [None]
  - PAIN [None]
  - SKIN HAEMORRHAGE [None]
  - RASH GENERALISED [None]
  - DRUG HYPERSENSITIVITY [None]
  - PRURITUS [None]
  - RASH MACULAR [None]
